FAERS Safety Report 9381530 (Version 2)
Quarter: 2013Q3

REPORT INFORMATION
  Report Type: Spontaneous
  Country: JP (occurrence: JP)
  Receive Date: 20130703
  Receipt Date: 20130801
  Transmission Date: 20140515
  Serious: Yes (Life-Threatening, Hospitalization, Other)
  Sender: FDA-Public Use
  Company Number: JP-MERCK-2011SP049724

PATIENT
  Age: 37 Year
  Sex: Male
  Weight: 58 kg

DRUGS (13)
  1. BRIDION [Suspect]
     Dosage: 120 MG, UNK
     Route: 042
     Dates: start: 20111004, end: 20111004
  2. PROPOFOL MARUISHI [Concomitant]
     Indication: INDUCTION OF ANAESTHESIA
     Dosage: 120 MG, UNK
     Dates: start: 20111004, end: 20111004
  3. DROLEPTAN [Concomitant]
     Indication: PROPHYLAXIS OF NAUSEA AND VOMITING
     Dosage: 1 MG, UNK
     Dates: start: 20111004, end: 20111004
  4. XYLOCAINE [Concomitant]
     Indication: ANALGESIC THERAPY
     Dosage: 1.5 % 4 ML
     Route: 008
     Dates: start: 20111004, end: 20111004
  5. ANAPEINE [Concomitant]
     Indication: ANALGESIC THERAPY
     Dosage: 0.5 % 6 ML
     Route: 008
     Dates: start: 20111004, end: 20111004
  6. ANAPEINE [Concomitant]
     Indication: POSTOPERATIVE ANALGESIA
  7. ULTIVA [Concomitant]
     Indication: ANALGESIC THERAPY
     Dosage: 200 MCG/HR
     Dates: start: 20111004, end: 20111004
  8. ULTIVA [Concomitant]
     Dosage: 0.3 MICROGRAM PER KILOGRAM (-1) MIN(-1)
  9. ULTIVA [Concomitant]
     Dosage: 0.05 MICROGRAM PER KILOGRAM (-1) MIN(-1)
  10. FENTANYL [Concomitant]
     Indication: ANALGESIC THERAPY
     Dosage: 100 MICROGRAM, UNK
     Dates: start: 20111004, end: 20111004
  11. SEVOFLURANE [Concomitant]
     Indication: ANALGESIC THERAPY
     Dosage: 1.5 % - 4 %
     Dates: start: 20111004, end: 20111004
  12. ESLAX [Concomitant]
     Indication: HYPOTONIA
     Dosage: 40 MG, UNK
     Route: 042
     Dates: start: 20111004, end: 20111004
  13. CEFAZOLIN [Concomitant]
     Dosage: 1 G, UNK

REACTIONS (6)
  - Pruritus [Recovered/Resolved]
  - Anaphylactic shock [Recovered/Resolved]
  - Urticaria [Recovered/Resolved]
  - Blood pressure decreased [Recovered/Resolved]
  - Heart rate increased [Recovered/Resolved]
  - Anaphylactic reaction [Recovered/Resolved]
